FAERS Safety Report 4287620-2 (Version None)
Quarter: 2004Q1

REPORT INFORMATION
  Report Type: 
  Country: None (occurrence: None)
  Receive Date: 20040209
  Receipt Date: 20030807
  Transmission Date: 20041129
  Serious: No
  Sender: FDA-Public Use
  Company Number: US-GLAXOSMITHKLINE-A0420111A

PATIENT
  Age: 58 Year
  Sex: Female

DRUGS (5)
  1. PAXIL CR [Suspect]
     Indication: ANXIETY DISORDER
     Dosage: 25MG PER DAY
     Route: 048
     Dates: start: 20020701, end: 20030731
  2. LESCOL [Concomitant]
  3. TRIAMTERENE [Concomitant]
  4. BEXTRA [Concomitant]
  5. EVISTA [Concomitant]

REACTIONS (1)
  - TENOSYNOVITIS [None]
